FAERS Safety Report 7638734-8 (Version None)
Quarter: 2011Q3

REPORT INFORMATION
  Report Type: 
  Country: None (occurrence: None)
  Receive Date: 20110727
  Receipt Date: 20110715
  Transmission Date: 20111222
  Serious: Yes (Hospitalization, Other)
  Sender: FDA-Public Use
  Company Number: US-ROCHE-680425

PATIENT
  Sex: Male
  Weight: 108.9 kg

DRUGS (4)
  1. ACCUTANE [Suspect]
     Indication: ACNE
     Route: 065
     Dates: start: 20040505, end: 20040526
  2. ACCUTANE [Suspect]
     Route: 065
     Dates: start: 20040907, end: 20050207
  3. LEVSIN [Concomitant]
  4. CIPROFLOXACIN HCL [Concomitant]

REACTIONS (8)
  - CROHN'S DISEASE [None]
  - COLITIS ULCERATIVE [None]
  - CHEILITIS [None]
  - PELVIC ABSCESS [None]
  - ENTEROVESICAL FISTULA [None]
  - DEPRESSION [None]
  - INTESTINAL OBSTRUCTION [None]
  - INFLAMMATORY BOWEL DISEASE [None]
